FAERS Safety Report 21798234 (Version 1)
Quarter: 2022Q4

REPORT INFORMATION
  Report Type: Spontaneous
  Country: US (occurrence: None)
  Receive Date: 20221229
  Receipt Date: 20221229
  Transmission Date: 20230112
  Serious: Yes (Death, Hospitalization)
  Sender: FDA-Public Use
  Company Number: None

PATIENT
  Sex: Female
  Weight: 62.6 kg

DRUGS (6)
  1. CYCLOPHOSPHAMIDE [Suspect]
     Active Substance: CYCLOPHOSPHAMIDE
     Dates: end: 20221129
  2. CYTARABINE [Suspect]
     Active Substance: CYTARABINE
     Dates: end: 20221006
  3. MERCAPTOPURINE [Suspect]
     Active Substance: MERCAPTOPURINE
     Dates: end: 20221222
  4. METHOTREXATE [Suspect]
     Active Substance: METHOTREXATE
     Dates: end: 20221213
  5. ONCASPAR [Suspect]
     Active Substance: PEGASPARGASE
     Dates: end: 20221213
  6. VINCRISTINE SULFATE [Suspect]
     Active Substance: VINCRISTINE SULFATE
     Dates: end: 20221213

REACTIONS (15)
  - Febrile neutropenia [None]
  - Thrombocytopenia [None]
  - Anaemia [None]
  - Hypertension [None]
  - Abdominal pain [None]
  - Diarrhoea [None]
  - Vomiting [None]
  - Hepatic steatosis [None]
  - Ascites [None]
  - Pleural effusion [None]
  - Hypotension [None]
  - Septic shock [None]
  - Candida infection [None]
  - Blood culture positive [None]
  - Dialysis [None]

NARRATIVE: CASE EVENT DATE: 20221218
